FAERS Safety Report 5865874-6 (Version None)
Quarter: 2008Q3

REPORT INFORMATION
  Report Type: 
  Country: None (occurrence: None)
  Receive Date: 20080829
  Receipt Date: 20080819
  Transmission Date: 20090109
  Serious: Yes (Other)
  Sender: FDA-Public Use
  Company Number: US-ELI_LILLY_AND_COMPANY-US200808004512

PATIENT
  Age: 10 Year
  Sex: Female

DRUGS (1)
  1. STRATTERA [Suspect]
     Dosage: UNK, UNK

REACTIONS (4)
  - ALOPECIA [None]
  - APPENDICITIS [None]
  - INTESTINAL OBSTRUCTION [None]
  - STRESS [None]
